FAERS Safety Report 7825057-7 (Version None)
Quarter: 2011Q4

REPORT INFORMATION
  Report Type: 
  Country: None (occurrence: None)
  Receive Date: 20111019
  Receipt Date: 20110914
  Transmission Date: 20120403
  Serious: No
  Sender: FDA-Public Use
  Company Number: US-BRISTOL-MYERS SQUIBB COMPANY-15718489

PATIENT
  Age: 76 Year
  Sex: Female

DRUGS (6)
  1. SYNTHROID [Concomitant]
  2. FISH OIL [Concomitant]
  3. ASPIRIN [Concomitant]
  4. AVALIDE [Suspect]
     Indication: BLOOD PRESSURE
     Dosage: 1DF-300/12.5MG
  5. TOPROL-XL [Concomitant]
  6. VITAMIN E [Concomitant]

REACTIONS (3)
  - PALPITATIONS [None]
  - DIZZINESS [None]
  - FEELING ABNORMAL [None]
